FAERS Safety Report 7652251-0 (Version None)
Quarter: 2011Q3

REPORT INFORMATION
  Report Type: 
  Country: None (occurrence: None)
  Receive Date: 20110803
  Receipt Date: 20110722
  Transmission Date: 20111222
  Serious: Yes (Other)
  Sender: FDA-Public Use
  Company Number: GB-ELI_LILLY_AND_COMPANY-GB201107006854

PATIENT
  Sex: Female

DRUGS (1)
  1. HUMULIN 70/30 [Suspect]

REACTIONS (4)
  - DRUG INEFFECTIVE [None]
  - CARDIAC OPERATION [None]
  - BLOOD GLUCOSE INCREASED [None]
  - FATIGUE [None]
